FAERS Safety Report 19484254 (Version 3)
Quarter: 2021Q3

REPORT INFORMATION
  Report Type: Report from Study
  Country: IT (occurrence: IT)
  Receive Date: 20210701
  Receipt Date: 20210825
  Transmission Date: 20211014
  Serious: Yes (Other)
  Sender: FDA-Public Use
  Company Number: IT-AKCEA THERAPEUTICS, INC.-2021IS001322

PATIENT
  Age: 72 Year
  Sex: Male
  Weight: 79.18 kg

DRUGS (8)
  1. CIPRALEX [Concomitant]
     Active Substance: ESCITALOPRAM OXALATE
     Route: 065
  2. TAFAMIDIS [Concomitant]
     Active Substance: TAFAMIDIS MEGLUMINE
     Route: 065
  3. TEGSEDI [Suspect]
     Active Substance: INOTERSEN SODIUM
     Indication: HEREDITARY NEUROPATHIC AMYLOIDOSIS
     Route: 058
     Dates: start: 202002, end: 20200601
  4. GABAPENTIN. [Concomitant]
     Active Substance: GABAPENTIN
     Route: 065
  5. VITAMIN A /00056001/ [Concomitant]
     Active Substance: RETINOL
  6. ISSD (INTEGRATED SYRINGE SAFETY DEVICE) [Suspect]
     Active Substance: DEVICE
  7. LOBIVON [Concomitant]
     Active Substance: NEBIVOLOL HYDROCHLORIDE
     Route: 065
  8. DIUREMID /00032601/ [Concomitant]
     Active Substance: FUROSEMIDE
     Route: 065

REACTIONS (15)
  - Vitrectomy [Recovered/Resolved]
  - Fundoscopy abnormal [Recovered/Resolved]
  - Retinopathy [Recovered/Resolved]
  - Vitreous disorder [Recovering/Resolving]
  - Eye disorder [Recovering/Resolving]
  - Malaise [Recovered/Resolved]
  - Foveal degeneration [Recovered/Resolved]
  - Haematoma [Unknown]
  - Heart rate decreased [Recovered/Resolved]
  - Tractional retinal detachment [Recovered/Resolved]
  - Retinal drusen [Recovered/Resolved]
  - Syncope [Recovered/Resolved]
  - Fall [Unknown]
  - Hypotension [Recovered/Resolved]
  - Maculopathy [Recovered/Resolved]

NARRATIVE: CASE EVENT DATE: 20210419
